FAERS Safety Report 6405362-1 (Version None)
Quarter: 2009Q4

REPORT INFORMATION
  Report Type: 
  Country: None (occurrence: None)
  Receive Date: 20091014
  Receipt Date: 20090930
  Transmission Date: 20100525
  Serious: Yes (Death)
  Sender: FDA-Public Use
  Company Number: 2009AC000055

PATIENT
  Age: 32 Year
  Sex: Female

DRUGS (13)
  1. DIGOXIN [Suspect]
     Dosage: 0.25 MG;QD;PO
     Route: 048
  2. HYDROCODONE [Concomitant]
  3. PROPOXYPHEN [Concomitant]
  4. SULFAMETHOXAZOLE [Concomitant]
  5. FUROSEMIDE [Concomitant]
  6. CIPROFLOXACIN HYDROCHLORIDE [Concomitant]
  7. KLOR-CON [Concomitant]
  8. POTASSIUM CHLORIDE [Concomitant]
  9. WARFARIN SODIUM [Concomitant]
  10. CITALOPRAM HYDROBROMIDE [Concomitant]
  11. GLYBURIDE [Concomitant]
  12. IODOFORM [Concomitant]
  13. BACTRIM [Concomitant]

REACTIONS (7)
  - COUGH [None]
  - DIABETES MELLITUS [None]
  - ECONOMIC PROBLEM [None]
  - FURUNCLE [None]
  - MULTIPLE INJURIES [None]
  - SURGERY [None]
  - WOUND INFECTION STAPHYLOCOCCAL [None]
